FAERS Safety Report 8014033-X (Version None)
Quarter: 2011Q4

REPORT INFORMATION
  Report Type: 
  Country: None (occurrence: None)
  Receive Date: 20111229
  Receipt Date: 20111227
  Transmission Date: 20120403
  Serious: Yes (Other)
  Sender: FDA-Public Use
  Company Number: US-BAYER-2011-117569

PATIENT
  Age: 27 Year
  Sex: Male

DRUGS (2)
  1. PREDNISONE TAB [Concomitant]
  2. AVELOX [Suspect]
     Indication: BRONCHITIS
     Dosage: DAILY DOSE 400 MG
     Dates: start: 20031027

REACTIONS (1)
  - UVEITIS [None]
